FAERS Safety Report 13183402 (Version 1)
Quarter: 2017Q1

REPORT INFORMATION
  Report Type: Spontaneous
  Country: US (occurrence: US)
  Receive Date: 20170203
  Receipt Date: 20170203
  Transmission Date: 20170428
  Serious: Yes (Other)
  Sender: FDA-Public Use
  Company Number: None

PATIENT
  Age: 80 Year
  Sex: Female
  Weight: 50.85 kg

DRUGS (5)
  1. REFRESH PLUS EYE DROPS [Concomitant]
  2. TYLENOL [Concomitant]
     Active Substance: ACETAMINOPHEN
  3. RESTASIS [Suspect]
     Active Substance: CYCLOSPORINE
  4. XIIDRA [Suspect]
     Active Substance: LIFITEGRAST
     Indication: DRY EYE
     Dosage: INTO EACH EYE
     Route: 031
     Dates: start: 20161129, end: 20161229
  5. ALEVE [Concomitant]
     Active Substance: NAPROXEN SODIUM

REACTIONS (1)
  - Dacryocystitis [None]

NARRATIVE: CASE EVENT DATE: 20161229
